FAERS Safety Report 10411401 (Version 3)
Quarter: 2014Q3

REPORT INFORMATION
  Report Type: Spontaneous
  Country: CA (occurrence: CA)
  Receive Date: 20140827
  Receipt Date: 20140901
  Transmission Date: 20150326
  Serious: Yes (Hospitalization, Other)
  Sender: FDA-Public Use
  Company Number: CA-AMGEN-CANSP2013077450

PATIENT
  Age: 72 Year
  Sex: Male

DRUGS (3)
  1. ASPIRIN                            /00002701/ [Suspect]
     Active Substance: ASPIRIN
     Indication: PRODUCT USED FOR UNKNOWN INDICATION
     Dosage: 81 MG, QD
     Route: 065
  2. COVERSYL                           /00790702/ [Concomitant]
     Active Substance: PERINDOPRIL
     Indication: BLOOD PRESSURE
     Dosage: UNK
  3. ENBREL [Suspect]
     Active Substance: ETANERCEPT
     Indication: RHEUMATOID ARTHRITIS
     Dosage: 50 MG, QWK
     Route: 065
     Dates: start: 20100722, end: 20140804

REACTIONS (9)
  - Acne [Not Recovered/Not Resolved]
  - Blood pressure abnormal [Unknown]
  - Rash pruritic [Not Recovered/Not Resolved]
  - Weight increased [Recovering/Resolving]
  - Nephrolithiasis [Unknown]
  - Fluid retention [Recovering/Resolving]
  - Abdominal pain upper [Recovering/Resolving]
  - Myocardial infarction [Recovering/Resolving]
  - Rash generalised [Not Recovered/Not Resolved]

NARRATIVE: CASE EVENT DATE: 20140810
